FAERS Safety Report 8844470 (Version 1)
Quarter: 2012Q4

REPORT INFORMATION
  Report Type: Spontaneous
  Country: US (occurrence: None)
  Receive Date: 20121016
  Receipt Date: 20121016
  Transmission Date: 20130627
  Serious: Yes (Hospitalization)
  Sender: FDA-Public Use
  Company Number: None

PATIENT
  Age: 80 Year

DRUGS (8)
  1. PLAVIX [Suspect]
     Indication: AFIB
     Dosage: chronic
     Route: 048
  2. ASPIRIN [Suspect]
     Dosage: chronic
     Route: 048
  3. WARFARIN [Suspect]
  4. ATORVASTATIN [Concomitant]
  5. RAMIPRIL [Concomitant]
  6. FOLIC ACID [Concomitant]
  7. METOPROLOL SUCCINATE [Concomitant]
  8. RANITIDINE [Concomitant]

REACTIONS (3)
  - Gastrointestinal haemorrhage [None]
  - International normalised ratio increased [None]
  - Haemoglobin decreased [None]
